FAERS Safety Report 15542350 (Version 1)
Quarter: 2018Q4

REPORT INFORMATION
  Report Type: Spontaneous
  Country: US (occurrence: US)
  Receive Date: 20181017
  Receipt Date: 20181017
  Transmission Date: 20190205
  Serious: Yes (Hospitalization, Disabling, Other)
  Sender: FDA-Public Use
  Company Number: None

PATIENT
  Age: 73 Year
  Sex: Female
  Weight: 90 kg

DRUGS (3)
  1. AMBIEN [Suspect]
     Active Substance: ZOLPIDEM TARTRATE
  2. ESTRADOIL [Concomitant]
  3. CLONAZEPAM 0.5 MGS (SANDOZ) [Suspect]
     Active Substance: CLONAZEPAM
     Indication: INSOMNIA
     Dosage: ?          QUANTITY:1 TABLET(S);?
     Route: 048
     Dates: start: 19990801, end: 20171109

REACTIONS (4)
  - Transient global amnesia [None]
  - Drug ineffective [None]
  - Suicide attempt [None]
  - Dizziness [None]

NARRATIVE: CASE EVENT DATE: 19990801
